FAERS Safety Report 21487351 (Version 3)
Quarter: 2023Q2

REPORT INFORMATION
  Report Type: Report from Study
  Country: TW (occurrence: TW)
  Receive Date: 20221020
  Receipt Date: 20230428
  Transmission Date: 20230722
  Serious: Yes (Hospitalization)
  Sender: FDA-Public Use
  Company Number: TW-GILEAD-2022-0601599

PATIENT
  Age: 65 Year
  Sex: Male
  Weight: 57.2 kg

DRUGS (36)
  1. SACITUZUMAB GOVITECAN [Suspect]
     Active Substance: SACITUZUMAB GOVITECAN
     Indication: Transitional cell carcinoma
     Dosage: 579 MG, D1D8
     Route: 042
     Dates: start: 20220907, end: 20221005
  2. HYDROXYCHLOROQUINE SULFATE [Concomitant]
     Active Substance: HYDROXYCHLOROQUINE SULFATE
     Dosage: UNK
     Dates: start: 20211202, end: 20221015
  3. PREDNISOLONE [Concomitant]
     Active Substance: PREDNISOLONE
     Dosage: UNK
     Dates: start: 20211126, end: 20221015
  4. CLONAZEPAM [Concomitant]
     Active Substance: CLONAZEPAM
     Dosage: UNK
     Dates: start: 20220117, end: 20221015
  5. FUROSEMIDE [Concomitant]
     Active Substance: FUROSEMIDE
     Dosage: UNK
     Dates: start: 20220526, end: 20221015
  6. SPIRONOLACTONE [Concomitant]
     Active Substance: SPIRONOLACTONE
     Dosage: UNK
     Dates: start: 20190912, end: 20221015
  7. NEBIVOLOL [Concomitant]
     Active Substance: NEBIVOLOL
     Dosage: UNK
     Dates: start: 20220526, end: 20221015
  8. TAMSULOSIN [Concomitant]
     Active Substance: TAMSULOSIN
     Dosage: UNK
     Dates: start: 20220319, end: 20221015
  9. DRONEDARONE [Concomitant]
     Active Substance: DRONEDARONE
     Dosage: UNK
     Dates: start: 20220623, end: 20221015
  10. NIFEDIPINE [Concomitant]
     Active Substance: NIFEDIPINE
     Dosage: UNK
     Dates: start: 20180809, end: 20221015
  11. DUTASTERIDE [Concomitant]
     Active Substance: DUTASTERIDE
     Dosage: UNK
     Dates: start: 20180822, end: 20221015
  12. EZETIMIB TEVA [Concomitant]
     Dosage: UNK
     Dates: start: 20181101, end: 20221015
  13. ATORVASTATIN [Concomitant]
     Active Substance: ATORVASTATIN
     Dosage: UNK
     Dates: start: 20220526, end: 20221015
  14. ESOMEPRAZOLE [Concomitant]
     Active Substance: ESOMEPRAZOLE
     Dosage: UNK
     Dates: start: 20220514, end: 20221015
  15. DIMETHICON [Concomitant]
     Dosage: UNK
     Dates: start: 20220508, end: 20221015
  16. DEXCHLORPHENIRAMINE [Concomitant]
     Active Substance: DEXCHLORPHENIRAMINE
     Dosage: UNK
     Dates: start: 20220921, end: 20221015
  17. CEFMETAZOL [Concomitant]
     Indication: Sepsis
     Dosage: UNK
     Dates: start: 20221014, end: 20221015
  18. ACETAMINOPHEN [Concomitant]
     Active Substance: ACETAMINOPHEN
     Indication: Sepsis
     Dosage: UNK
     Dates: start: 20221014
  19. LYSINE ACETYLSALICYLATE [Concomitant]
     Active Substance: ASPIRIN DL-LYSINE
     Indication: Sepsis
     Dosage: UNK
     Dates: start: 20220914, end: 20221015
  20. BISACODYL [Concomitant]
     Active Substance: BISACODYL
     Indication: Ileus
     Dosage: UNK
     Dates: start: 20221014
  21. METOCLOPRAMIDE [Concomitant]
     Active Substance: METOCLOPRAMIDE
     Indication: Ileus
     Dosage: UNK
     Dates: start: 20221014
  22. AMINO ACIDS, SOURCE UNSPECIFIED [Concomitant]
     Active Substance: AMINO ACIDS, SOURCE UNSPECIFIED
     Indication: Ileus
     Dosage: UNK
     Dates: start: 20221014, end: 20221015
  23. PIPERACILLIN SODIUM\TAZOBACTAM SODIUM [Concomitant]
     Active Substance: PIPERACILLIN SODIUM\TAZOBACTAM SODIUM
     Indication: Sepsis
     Dosage: UNK
     Dates: start: 20221015, end: 20221016
  24. PIPERACILLIN SODIUM\TAZOBACTAM SODIUM [Concomitant]
     Active Substance: PIPERACILLIN SODIUM\TAZOBACTAM SODIUM
     Dosage: UNK
     Dates: start: 20221016
  25. TRAMADOL [Concomitant]
     Active Substance: TRAMADOL
     Indication: Ileus
     Dosage: UNK
     Dates: start: 20221015, end: 20221016
  26. TRAMADOL [Concomitant]
     Active Substance: TRAMADOL
     Dosage: UNK
     Dates: start: 20221016
  27. AMIODARONE [Concomitant]
     Active Substance: AMIODARONE
     Dosage: UNK
     Dates: start: 20221016, end: 20221017
  28. LEVOPHED [Concomitant]
     Active Substance: NOREPINEPHRINE BITARTRATE
     Indication: Sepsis
     Dosage: UNK
     Dates: start: 20221015
  29. ALBUMIN HUMAN [Concomitant]
     Active Substance: ALBUMIN HUMAN
     Indication: Hypoalbuminaemia
     Dosage: UNK
     Dates: start: 20221015, end: 20221016
  30. MAGNESIUM SULFATE [Concomitant]
     Active Substance: MAGNESIUM SULFATE
     Dosage: UNK
     Dates: start: 20221015, end: 20221016
  31. POTASSIUM CHLORIDE [Concomitant]
     Active Substance: POTASSIUM CHLORIDE
     Indication: Hypokalaemia
     Dosage: UNK
     Dates: start: 20221015, end: 20221016
  32. LACTATED RINGERS SOLUTION [Concomitant]
     Active Substance: CALCIUM CHLORIDE\POTASSIUM CHLORIDE\SODIUM CHLORIDE\SODIUM LACTATE
     Indication: Sepsis
     Dosage: UNK
     Dates: start: 20221015, end: 20221017
  33. DEXTROSE [Concomitant]
     Active Substance: DEXTROSE\DEXTROSE MONOHYDRATE
     Dosage: UNK
     Dates: start: 20221016, end: 20221017
  34. POTASSIUM GLUCONATE [Concomitant]
     Active Substance: POTASSIUM GLUCONATE
     Indication: Hypokalaemia
     Dosage: UNK, TENTATIVE STOP DATE 19OCT22
     Dates: start: 20221017
  35. SODIUM CHLORIDE [Concomitant]
     Active Substance: SODIUM CHLORIDE
     Dosage: UNK
     Dates: start: 20221014
  36. DEXTROSE AND ELECTROLYTE NO. 48 [Concomitant]
     Active Substance: DEXTROSE MONOHYDRATE\MAGNESIUM CHLORIDE\POTASSIUM CHLORIDE\POTASSIUM PHOSPHATE, MONOBASIC\SODIUM CHL
     Dosage: UNK
     Dates: start: 20221014

REACTIONS (1)
  - Septic shock [Not Recovered/Not Resolved]

NARRATIVE: CASE EVENT DATE: 20221014
